FAERS Safety Report 7381896-0 (Version None)
Quarter: 2011Q1

REPORT INFORMATION
  Report Type: 
  Country: None (occurrence: None)
  Receive Date: 20110329
  Receipt Date: 20110315
  Transmission Date: 20110831
  Serious: Yes (Death)
  Sender: FDA-Public Use
  Company Number: CA-CELGENEUS-028-21880-11031811

PATIENT
  Sex: Male

DRUGS (11)
  1. NEURONTIN [Concomitant]
     Route: 065
  2. AREDIA [Concomitant]
     Route: 065
  3. ASPIRIN [Concomitant]
     Route: 065
  4. PANTOLOC [Concomitant]
     Route: 065
  5. SENOKOT [Concomitant]
     Route: 065
  6. DECADRON [Concomitant]
     Dosage: 40 MILLIGRAM
     Route: 065
  7. AMITRIPTYLINE [Concomitant]
     Route: 065
  8. OXAZEPAM [Concomitant]
     Route: 065
  9. COLACE [Concomitant]
     Route: 065
  10. HYDROMORPHONE HCL [Concomitant]
     Route: 065
  11. REVLIMID [Suspect]
     Indication: MULTIPLE MYELOMA
     Dosage: 10 MILLIGRAM
     Route: 048
     Dates: start: 20100406

REACTIONS (1)
  - DEATH [None]
